FAERS Safety Report 5528720-6 (Version None)
Quarter: 2007Q4

REPORT INFORMATION
  Report Type: 
  Country: None (occurrence: None)
  Receive Date: 20071114
  Receipt Date: 20070726
  Transmission Date: 20080405
  Serious: Yes (Other)
  Sender: FDA-Public Use
  Company Number: 07-001570

PATIENT
  Age: 57 Year
  Sex: Female

DRUGS (4)
  1. FEMHRT [Suspect]
     Indication: HORMONE THERAPY
     Dosage: 1MG/5MCG, QD, ORAL
     Route: 048
     Dates: start: 20050101, end: 20070701
  2. LIPITOR [Concomitant]
  3. TOPROL-XL [Concomitant]
  4. BENICAR [Concomitant]

REACTIONS (1)
  - BREAST NEOPLASM [None]
